FAERS Safety Report 8593465-5 (Version None)
Quarter: 2012Q3

REPORT INFORMATION
  Report Type: 
  Country: None (occurrence: None)
  Receive Date: 20120814
  Receipt Date: 20120807
  Transmission Date: 20120928
  Serious: Yes (Hospitalization)
  Sender: FDA-Public Use
  Company Number: JP-VERTEX PHARMACEUTICALS INC.-AE-2012-011975

PATIENT
  Age: 67 Year
  Sex: Male

DRUGS (3)
  1. REBETOL [Concomitant]
     Route: 048
     Dates: start: 20120703
  2. PEG-INTRON [Concomitant]
     Route: 058
     Dates: start: 20120703
  3. TELAVIC (TELAPREVIR) [Suspect]
     Indication: HEPATITIS C
     Route: 048
     Dates: start: 20120703, end: 20120807

REACTIONS (2)
  - ERYTHEMA MULTIFORME [None]
  - RASH [None]
